FAERS Safety Report 12251841 (Version 2)
Quarter: 2016Q3

REPORT INFORMATION
  Report Type: Spontaneous
  Country: US (occurrence: US)
  Receive Date: 20160411
  Receipt Date: 20160803
  Transmission Date: 20161109
  Serious: Yes (Hospitalization)
  Sender: FDA-Public Use
  Company Number: US-BEH-2016060794

PATIENT
  Age: 54 Year
  Sex: Male
  Weight: 136.8 kg

DRUGS (32)
  1. XARELTO [Concomitant]
     Active Substance: RIVAROXABAN
  2. XANAX [Concomitant]
     Active Substance: ALPRAZOLAM
  3. ACTOS [Concomitant]
     Active Substance: PIOGLITAZONE HYDROCHLORIDE
  4. CIPRO [Concomitant]
     Active Substance: CIPROFLOXACIN HYDROCHLORIDE
  5. PRAVASTATIN. [Concomitant]
     Active Substance: PRAVASTATIN
  6. SODIUM CHLORIDE. [Concomitant]
     Active Substance: SODIUM CHLORIDE
  7. VITAMIN D [Concomitant]
     Active Substance: CHOLECALCIFEROL
  8. ADULT ASPIRIN [Concomitant]
  9. INSULIN GLARGINE [Concomitant]
     Active Substance: INSULIN GLARGINE
  10. SIMVASTATIN. [Concomitant]
     Active Substance: SIMVASTATIN
  11. VERAPAMIL ER [Concomitant]
     Active Substance: VERAPAMIL HYDROCHLORIDE
  12. IBUPROFEN. [Concomitant]
     Active Substance: IBUPROFEN
  13. INDOMETHACIN. [Concomitant]
     Active Substance: INDOMETHACIN
  14. ALBUTEROL. [Concomitant]
     Active Substance: ALBUTEROL
  15. LASIX [Concomitant]
     Active Substance: FUROSEMIDE
  16. ZEMAIRA [Suspect]
     Active Substance: .ALPHA.1-PROTEINASE INHIBITOR HUMAN
     Indication: ALPHA-1 ANTI-TRYPSIN DEFICIENCY
     Dosage: 60 MG/KG, QW
     Route: 042
  17. EPIPEN [Concomitant]
     Active Substance: EPINEPHRINE
  18. LMX [Concomitant]
     Active Substance: LIDOCAINE
  19. LEXAPRO [Concomitant]
     Active Substance: ESCITALOPRAM OXALATE
  20. ADVIL [Concomitant]
     Active Substance: IBUPROFEN
  21. POTASSIUM CHLORIDE. [Concomitant]
     Active Substance: POTASSIUM CHLORIDE
  22. ZEMAIRA [Suspect]
     Active Substance: .ALPHA.1-PROTEINASE INHIBITOR HUMAN
     Dosage: UNK
     Route: 042
  23. DIPHENHYDRAMINE. [Concomitant]
     Active Substance: DIPHENHYDRAMINE
  24. FLOVENT [Concomitant]
     Active Substance: FLUTICASONE PROPIONATE
  25. SPIRIVA [Concomitant]
     Active Substance: TIOTROPIUM BROMIDE MONOHYDRATE
  26. SINGULAIR [Concomitant]
     Active Substance: MONTELUKAST SODIUM
  27. OXYGEN. [Concomitant]
     Active Substance: OXYGEN
  28. DIGOXIN. [Concomitant]
     Active Substance: DIGOXIN
  29. SYMBICORT [Concomitant]
     Active Substance: BUDESONIDE\FORMOTEROL FUMARATE DIHYDRATE
  30. IPRATROPIUM BR [Concomitant]
  31. PROVENTIL [Concomitant]
     Active Substance: ALBUTEROL
  32. KOMBIGLYZE XR [Concomitant]
     Active Substance: METFORMIN HYDROCHLORIDE\SAXAGLIPTIN HYDROCHLORIDE

REACTIONS (3)
  - Nasopharyngitis [Recovered/Resolved]
  - Dyspnoea [Recovered/Resolved]
  - Nasopharyngitis [Recovered/Resolved]

NARRATIVE: CASE EVENT DATE: 20160227
